FAERS Safety Report 8295561-9 (Version None)
Quarter: 2012Q2

REPORT INFORMATION
  Report Type: 
  Country: None (occurrence: None)
  Receive Date: 20120413
  Receipt Date: 20120402
  Transmission Date: 20120825
  Serious: Yes (Congenital Anomaly)
  Sender: FDA-Public Use
  Company Number: 2012MA004387

PATIENT
  Sex: Male

DRUGS (2)
  1. METHIMAZOLE [Concomitant]
  2. PROPYL-THIOURACIL [Suspect]
     Indication: FOETAL EXPOSURE DURING PREGNANCY
     Dosage: 50 MG;QD;PO
     Route: 048

REACTIONS (4)
  - CHOANAL ATRESIA [None]
  - ALOPECIA [None]
  - APLASIA CUTIS CONGENITA [None]
  - MATERNAL DRUGS AFFECTING FOETUS [None]
